FAERS Safety Report 25911726 (Version 1)
Quarter: 2025Q4

REPORT INFORMATION
  Report Type: Spontaneous
  Country: EU (occurrence: EU)
  Receive Date: 20251013
  Receipt Date: 20251013
  Transmission Date: 20260118
  Serious: Yes (Other)
  Sender: AUROBINDO
  Company Number: EU-AFSSAPS-BR2025000629

PATIENT
  Age: 78 Year
  Sex: Female
  Weight: 80 kg

DRUGS (3)
  1. CARBOPLATIN [Suspect]
     Active Substance: CARBOPLATIN
     Indication: Small cell lung cancer
     Dosage: 470 MILLIGRAM
     Route: 042
     Dates: start: 20250416
  2. ETOPOSIDE [Suspect]
     Active Substance: ETOPOSIDE
     Indication: Small cell lung cancer
     Dosage: 184 MILLIGRAM
     Route: 042
     Dates: start: 20250416
  3. EYLEA [Concomitant]
     Active Substance: AFLIBERCEPT
     Indication: Detachment of retinal pigment epithelium
     Dosage: 1 DOSAGE FORM
     Route: 050
     Dates: start: 20250520, end: 20250715

REACTIONS (1)
  - Macular oedema [Not Recovered/Not Resolved]

NARRATIVE: CASE EVENT DATE: 20250909
